FAERS Safety Report 12617918 (Version 1)
Quarter: 2016Q3

REPORT INFORMATION
  Report Type: Spontaneous
  Country: US (occurrence: US)
  Receive Date: 20160803
  Receipt Date: 20160803
  Transmission Date: 20161109
  Serious: No
  Sender: FDA-Public Use
  Company Number: US-BIOGEN-2016BI00273381

PATIENT
  Sex: Female

DRUGS (1)
  1. TYSABRI [Suspect]
     Active Substance: NATALIZUMAB
     Indication: MULTIPLE SCLEROSIS
     Route: 065
     Dates: start: 20140912

REACTIONS (4)
  - Stress [Not Recovered/Not Resolved]
  - Memory impairment [Not Recovered/Not Resolved]
  - Hypoaesthesia [Not Recovered/Not Resolved]
  - Depression [Not Recovered/Not Resolved]
